FAERS Safety Report 9888328 (Version 4)
Quarter: 2014Q2

REPORT INFORMATION
  Report Type: Spontaneous
  Country: US (occurrence: US)
  Receive Date: 20140211
  Receipt Date: 20140530
  Transmission Date: 20141212
  Serious: No
  Sender: FDA-Public Use
  Company Number: US-PFIZER INC-2014036126

PATIENT
  Age: 63 Year
  Sex: Female
  Weight: 55.78 kg

DRUGS (3)
  1. TOVIAZ [Suspect]
     Indication: URINARY INCONTINENCE
     Dosage: 4 MG, 2X/DAY
     Dates: start: 201401, end: 201401
  2. TOVIAZ [Suspect]
     Dosage: 8 MG, 2X/DAY
     Dates: start: 201401
  3. TOVIAZ [Suspect]
     Dosage: 4 MG (CUTTING AND TAKING ONE HALF OF 8 MG IN THE MORNING AND ONE HALF OF 8 MG AT NIGHT), 2X/DAY

REACTIONS (6)
  - Wrong technique in drug usage process [Not Recovered/Not Resolved]
  - Incorrect dose administered [Recovered/Resolved]
  - Dry mouth [Not Recovered/Not Resolved]
  - Constipation [Not Recovered/Not Resolved]
  - Somnolence [Recovering/Resolving]
  - Vision blurred [Unknown]
